FAERS Safety Report 7449705-9 (Version None)
Quarter: 2011Q1

REPORT INFORMATION
  Report Type: 
  Country: None (occurrence: None)
  Receive Date: 20110302
  Receipt Date: 20101201
  Transmission Date: 20110831
  Serious: No
  Sender: FDA-Public Use
  Company Number: 023089

PATIENT
  Sex: Female

DRUGS (2)
  1. CIMZIA [Suspect]
     Indication: CROHN'S DISEASE
     Dosage: SUBCUTANEOUS, SPLIT THE DOSE OF CIMZIA INJECTION TO EVERY TWO WEEKS SUBCUTANEOUS
     Route: 058
     Dates: start: 20101115
  2. CIMZIA [Suspect]
     Indication: CROHN'S DISEASE
     Dosage: SUBCUTANEOUS, SPLIT THE DOSE OF CIMZIA INJECTION TO EVERY TWO WEEKS SUBCUTANEOUS
     Route: 058
     Dates: start: 20100701

REACTIONS (3)
  - ABDOMINAL PAIN [None]
  - APHAGIA [None]
  - FAECES HARD [None]
